FAERS Safety Report 6688022-1 (Version None)
Quarter: 2010Q2

REPORT INFORMATION
  Report Type: 
  Country: None (occurrence: None)
  Receive Date: 20100420
  Receipt Date: 20100409
  Transmission Date: 20101027
  Serious: Yes (Death, Other)
  Sender: FDA-Public Use
  Company Number: DE-BAYER-201022086GPV

PATIENT
  Age: 61 Year
  Sex: Male

DRUGS (2)
  1. REFLUDAN [Suspect]
     Indication: HEPARIN-INDUCED THROMBOCYTOPENIA
     Route: 065
  2. HEPARIN [Concomitant]
     Indication: POSTOPERATIVE CARE
     Route: 065

REACTIONS (2)
  - MULTI-ORGAN FAILURE [None]
  - PULMONARY EMBOLISM [None]
